FAERS Safety Report 6435834-5 (Version None)
Quarter: 2009Q4

REPORT INFORMATION
  Report Type: 
  Country: None (occurrence: None)
  Receive Date: 20091111
  Receipt Date: 20091106
  Transmission Date: 20100525
  Serious: Yes (Hospitalization)
  Sender: FDA-Public Use
  Company Number: US-GILEAD-2009-0025203

PATIENT
  Sex: Female
  Weight: 56.75 kg

DRUGS (7)
  1. LETAIRIS [Suspect]
     Indication: PULMONARY ARTERIAL HYPERTENSION
     Route: 048
     Dates: start: 20080424
  2. REVATIO [Concomitant]
     Route: 048
  3. DIOVAN [Concomitant]
     Route: 046
  4. HYDROCHLOROTHIAZIDE [Concomitant]
     Route: 048
  5. ENULOSE [Concomitant]
     Route: 048
  6. ZIFAXAN [Concomitant]
     Route: 048
  7. POTASSIUM CHLORIDE [Concomitant]
     Route: 048

REACTIONS (2)
  - ATRIAL FLUTTER [None]
  - HYPOVOLAEMIA [None]
